FAERS Safety Report 24625788 (Version 1)
Quarter: 2024Q4

REPORT INFORMATION
  Report Type: Spontaneous
  Country: US (occurrence: US)
  Receive Date: 20241115
  Receipt Date: 20241115
  Transmission Date: 20250115
  Serious: No
  Sender: ANI
  Company Number: US-ANIPHARMA-2024-US-043823

PATIENT
  Sex: Male

DRUGS (8)
  1. CORTICOTROPIN [Suspect]
     Active Substance: CORTICOTROPIN
     Indication: Sarcoidosis
  2. FOLIC ACID [Concomitant]
     Active Substance: FOLIC ACID
  3. ROPINIROLE HYDROCHLORIDE [Concomitant]
     Active Substance: ROPINIROLE HYDROCHLORIDE
  4. ALLOPURINOL [Concomitant]
     Active Substance: ALLOPURINOL
  5. METHOTREXATE [Concomitant]
     Active Substance: METHOTREXATE
  6. METHOCARBAMOL [Concomitant]
     Active Substance: METHOCARBAMOL
  7. CELEBREX [Concomitant]
     Active Substance: CELECOXIB
  8. VITAMINS [Concomitant]
     Active Substance: VITAMINS

REACTIONS (2)
  - Product dose omission issue [Unknown]
  - Injection site pain [Unknown]
